FAERS Safety Report 4513418-3 (Version None)
Quarter: 2004Q4

REPORT INFORMATION
  Report Type: 
  Country: None (occurrence: None)
  Receive Date: 20041130
  Receipt Date: 20040924
  Transmission Date: 20050328
  Serious: No
  Sender: FDA-Public Use
  Company Number: US-BRISTOL-MYERS SQUIBB COMPANY-12713277

PATIENT
  Age: 58 Year
  Sex: Male
  Weight: 78 kg

DRUGS (9)
  1. ERBITUX [Suspect]
     Indication: COLON CANCER METASTATIC
     Route: 042
     Dates: start: 20040916, end: 20040916
  2. BENADRYL [Concomitant]
     Indication: PREMEDICATION
     Dates: start: 20040916, end: 20040916
  3. KYTRIL [Concomitant]
     Indication: PREMEDICATION
     Dates: start: 20040916, end: 20040916
  4. CAMPTOSAR [Concomitant]
     Indication: CHEMOTHERAPY
     Dates: start: 20040916, end: 20040916
  5. FLUOROURACIL [Concomitant]
     Indication: CHEMOTHERAPY
     Dates: start: 20040916, end: 20040916
  6. LEUCOVORIN [Concomitant]
     Indication: CHEMOTHERAPY
     Dates: start: 20040916, end: 20040916
  7. COMPAZINE [Concomitant]
  8. HYTRIN [Concomitant]
  9. IRON [Concomitant]

REACTIONS (3)
  - MEDICATION ERROR [None]
  - NO ADVERSE EFFECT [None]
  - OVERDOSE [None]
